FAERS Safety Report 13921345 (Version 1)
Quarter: 2017Q3

REPORT INFORMATION
  Report Type: Spontaneous
  Country: CN (occurrence: CN)
  Receive Date: 20170830
  Receipt Date: 20170830
  Transmission Date: 20171127
  Serious: Yes (Hospitalization, Other)
  Sender: FDA-Public Use
  Company Number: CN-MYLANLABS-2017M1053148

PATIENT
  Age: 62 Year
  Sex: Female

DRUGS (2)
  1. ETOPOSIDE. [Suspect]
     Active Substance: ETOPOSIDE
     Indication: SMALL CELL LUNG CANCER
     Dosage: 100 MG/M2 IVGTT FROM DAY 1 TO 3
     Route: 042
  2. LOBAPLATIN [Suspect]
     Active Substance: LOBAPLATIN
     Indication: SMALL CELL LUNG CANCER
     Dosage: 30 MG/M2 IVGTT FROM DAY 1 TO 3
     Route: 042

REACTIONS (1)
  - Pancreatitis acute [Unknown]
